FAERS Safety Report 18162237 (Version 1)
Quarter: 2020Q3

REPORT INFORMATION
  Report Type: Spontaneous
  Country: US (occurrence: US)
  Receive Date: 20200818
  Receipt Date: 20200818
  Transmission Date: 20201103
  Serious: Yes (Life-Threatening, Hospitalization, Other)
  Sender: FDA-Public Use
  Company Number: US-VELOXIS PHARMACEUTICALS-2020VELUS-000737

PATIENT
  Age: 50 Year
  Sex: Female

DRUGS (4)
  1. ENVARSUS XR [Suspect]
     Active Substance: TACROLIMUS
     Indication: IMMUNOSUPPRESSANT DRUG THERAPY
     Dosage: 1.5 MILLIGRAM, Q12H
  2. AMPHOTERICIN B. [Interacting]
     Active Substance: AMPHOTERICIN B
     Indication: HISTOPLASMOSIS DISSEMINATED
     Dosage: UNK
  3. MYCOPHENOLATE MOFETIL. [Suspect]
     Active Substance: MYCOPHENOLATE MOFETIL
     Indication: IMMUNOSUPPRESSANT DRUG THERAPY
     Dosage: 540 MILLIGRAM, Q12H
  4. PREDNISONE. [Suspect]
     Active Substance: PREDNISONE
     Indication: IMMUNOSUPPRESSANT DRUG THERAPY
     Dosage: 5 MILLIGRAM, QD (CHRONIC)

REACTIONS (9)
  - Histoplasmosis cutaneous [Recovering/Resolving]
  - Drug interaction [Recovered/Resolved]
  - Transaminases increased [Recovered/Resolved]
  - Histoplasmosis disseminated [Recovering/Resolving]
  - Acute kidney injury [Recovered/Resolved]
  - Nephropathy toxic [Recovered/Resolved]
  - Pharyngitis streptococcal [Unknown]
  - Condition aggravated [Recovered/Resolved]
  - Drug level above therapeutic [Recovered/Resolved]
